FAERS Safety Report 8501777-6 (Version None)
Quarter: 2012Q3

REPORT INFORMATION
  Report Type: 
  Country: None (occurrence: None)
  Receive Date: 20120705
  Receipt Date: 20120705
  Transmission Date: 20120928
  Serious: Yes (Hospitalization)
  Sender: FDA-Public Use
  Company Number: None

PATIENT
  Age: 62 Year
  Sex: Male

DRUGS (9)
  1. IBUPROFEN [Concomitant]
  2. PHENAZOPHYRIDINE [Concomitant]
  3. ALBUTEROL [Concomitant]
  4. ALFUZOSIN HCL [Concomitant]
  5. BENADRYL [Concomitant]
  6. ACIPHEX [Concomitant]
  7. ADVAIR DISKUS 100/50 [Concomitant]
  8. VERAPAMIL [Concomitant]
  9. HYDROCHLOROTHIAZIDE 25 MG [Suspect]
     Indication: HYPERTENSION
     Dosage: 25 MG DAILY PO
     Route: 048

REACTIONS (3)
  - PRURITUS [None]
  - OEDEMA [None]
  - RASH ERYTHEMATOUS [None]
